FAERS Safety Report 20691773 (Version 2)
Quarter: 2022Q2

REPORT INFORMATION
  Report Type: Spontaneous
  Country: US (occurrence: US)
  Receive Date: 20220408
  Receipt Date: 20220618
  Transmission Date: 20220721
  Serious: Yes (Other)
  Sender: FDA-Public Use
  Company Number: US-TEVA-2022-US-2025268

PATIENT
  Age: 50 Year

DRUGS (1)
  1. IDARUBICIN [Suspect]
     Active Substance: IDARUBICIN
     Route: 065

REACTIONS (4)
  - Pulmonary congestion [Unknown]
  - Hypersensitivity [Unknown]
  - Depressed mood [Unknown]
  - Rash [Not Recovered/Not Resolved]
